FAERS Safety Report 7008386-9 (Version None)
Quarter: 2010Q3

REPORT INFORMATION
  Report Type: 
  Country: None (occurrence: None)
  Receive Date: 20100922
  Receipt Date: 20100913
  Transmission Date: 20110219
  Serious: Yes (Hospitalization)
  Sender: FDA-Public Use
  Company Number: B0585222A

PATIENT
  Sex: Female

DRUGS (14)
  1. PAZOPANIB [Suspect]
     Indication: OVARIAN CANCER
     Dosage: 400MG PER DAY
     Route: 048
     Dates: start: 20090402, end: 20090716
  2. LAPATINIB [Suspect]
     Indication: OVARIAN CANCER
     Dosage: 1000MG PER DAY
     Route: 048
     Dates: start: 20090402, end: 20090716
  3. TANATRIL [Suspect]
     Indication: HYPERTENSION
     Dosage: 5MG PER DAY
     Route: 048
     Dates: start: 20090428, end: 20090714
  4. NORVASC [Concomitant]
     Indication: HYPERTENSION
     Dosage: 5MG PER DAY
     Route: 048
     Dates: start: 20090710
  5. DEPAS [Concomitant]
     Indication: HEADACHE
     Route: 048
     Dates: start: 20090528
  6. METHYLCOBAL [Concomitant]
     Dosage: 4500MCG PER DAY
     Route: 048
     Dates: start: 20090624
  7. PYDOXAL [Concomitant]
     Dosage: 90MG PER DAY
     Route: 048
     Dates: start: 20090624
  8. RIBOFLAVIN TAB [Concomitant]
     Dosage: 180MG PER DAY
     Route: 048
     Dates: start: 20090624
  9. LAC B [Concomitant]
     Dosage: 9G PER DAY
     Route: 048
     Dates: start: 20090624
  10. ADSORBIN [Concomitant]
     Route: 048
     Dates: start: 20090707
  11. ALBUMIN TANNATE [Concomitant]
     Route: 048
     Dates: start: 20090707
  12. LOPEMIN [Concomitant]
     Route: 048
     Dates: start: 20090512
  13. HIRUDOID [Concomitant]
     Route: 061
     Dates: start: 20090504
  14. POSTERISAN [Concomitant]
     Indication: PROPHYLAXIS
     Route: 061

REACTIONS (3)
  - COUGH [None]
  - HEPATIC FUNCTION ABNORMAL [None]
  - PNEUMONIA [None]
